FAERS Safety Report 23328114 (Version 1)
Quarter: 2023Q4

REPORT INFORMATION
  Report Type: Spontaneous
  Country: US (occurrence: US)
  Receive Date: 20231221
  Receipt Date: 20231221
  Transmission Date: 20240110
  Serious: Yes (Other)
  Sender: FDA-Public Use
  Company Number: US-ASCENDIS PHARMA-2023US003703

PATIENT

DRUGS (3)
  1. SKYTROFA [Suspect]
     Active Substance: LONAPEGSOMATROPIN-TCGD
     Indication: Growth hormone deficiency
     Dosage: 11 MILLIGRAM, WEEKLY
     Route: 058
     Dates: start: 20230731, end: 20230928
  2. ANASTROZOLE [Concomitant]
     Active Substance: ANASTROZOLE
     Indication: Short stature
     Dosage: 1 MILLIGRAM
     Route: 048
     Dates: start: 20230907
  3. LEVOTHYROXINE [Concomitant]
     Active Substance: LEVOTHYROXINE
     Indication: Hypothyroidism
     Dosage: 125 MICROGRAM
     Route: 048
     Dates: start: 20181101

REACTIONS (5)
  - Loss of consciousness [Recovered/Resolved]
  - Dizziness [Recovered/Resolved]
  - Headache [Recovered/Resolved]
  - Neurological symptom [Unknown]
  - Disorientation [Unknown]

NARRATIVE: CASE EVENT DATE: 20230803
